FAERS Safety Report 7253483-6 (Version None)
Quarter: 2011Q1

REPORT INFORMATION
  Report Type: 
  Country: None (occurrence: None)
  Receive Date: 20110129
  Receipt Date: 20100215
  Transmission Date: 20110831
  Serious: No
  Sender: FDA-Public Use
  Company Number: US-ABBOTT-10P-163-0626411-00

PATIENT
  Sex: Female
  Weight: 84.444 kg

DRUGS (3)
  1. HUMIRA [Suspect]
     Indication: PSORIATIC ARTHROPATHY
     Dates: start: 20060412
  2. NAPROSYN [Concomitant]
     Indication: PAIN
  3. TRAMADOL HCL [Concomitant]
     Indication: PAIN

REACTIONS (11)
  - ANXIETY [None]
  - FALL [None]
  - PAIN [None]
  - EYE SWELLING [None]
  - CONTUSION [None]
  - CONFUSIONAL STATE [None]
  - MEMORY IMPAIRMENT [None]
  - NASAL CONGESTION [None]
  - SPUTUM DISCOLOURED [None]
  - TINNITUS [None]
  - DEPRESSION [None]
